FAERS Safety Report 6286376-1 (Version None)
Quarter: 2009Q3

REPORT INFORMATION
  Report Type: 
  Country: None (occurrence: None)
  Receive Date: 20090728
  Receipt Date: 20090720
  Transmission Date: 20100115
  Serious: Yes (Death, Hospitalization)
  Sender: FDA-Public Use
  Company Number: US-GILEAD-2009-0023211

PATIENT
  Sex: Female
  Weight: 90.8 kg

DRUGS (10)
  1. LETAIRIS [Suspect]
     Indication: PULMONARY ARTERIAL HYPERTENSION
     Route: 048
     Dates: start: 20080205
  2. REMODULIN [Concomitant]
  3. CIALIS [Concomitant]
  4. COUMADIN [Concomitant]
  5. LASIX [Concomitant]
  6. SPIRONOLACTONE [Concomitant]
  7. DIGOXIN [Concomitant]
  8. SINGULAIR [Concomitant]
  9. ZOFRAN [Concomitant]
  10. PREVACID [Concomitant]

REACTIONS (3)
  - DEHYDRATION [None]
  - PHARYNGITIS STREPTOCOCCAL [None]
  - PYREXIA [None]
